FAERS Safety Report 17837234 (Version 2)
Quarter: 2021Q1

REPORT INFORMATION
  Report Type: Spontaneous
  Country: CA (occurrence: CA)
  Receive Date: 20200529
  Receipt Date: 20210312
  Transmission Date: 20210419
  Serious: Yes (Hospitalization)
  Sender: FDA-Public Use
  Company Number: CA-ROCHE-2605046

PATIENT
  Age: 69 Year
  Sex: Female
  Weight: 96 kg

DRUGS (17)
  1. APO?NADOL [Suspect]
     Active Substance: NADOLOL
     Indication: PRODUCT USED FOR UNKNOWN INDICATION
     Dosage: 136 DAYS
     Route: 065
  2. LIPITOR [Suspect]
     Active Substance: ATORVASTATIN CALCIUM
     Indication: PRODUCT USED FOR UNKNOWN INDICATION
     Dosage: 136 DAYS
     Route: 065
  3. COZAAR [Concomitant]
     Active Substance: LOSARTAN POTASSIUM
  4. SYNTHROID [Concomitant]
     Active Substance: LEVOTHYROXINE SODIUM
     Indication: PRODUCT USED FOR UNKNOWN INDICATION
     Route: 065
  5. COVERSYL [Suspect]
     Active Substance: PERINDOPRIL
     Indication: PRODUCT USED FOR UNKNOWN INDICATION
     Route: 065
  6. ESTRADIOL. [Concomitant]
     Active Substance: ESTRADIOL
  7. CHOLECALCIFEROL [Concomitant]
     Active Substance: CHOLECALCIFEROL
  8. DELATESTRYL [Concomitant]
     Active Substance: TESTOSTERONE ENANTHATE
     Route: 042
  9. FUROSEMIDE. [Concomitant]
     Active Substance: FUROSEMIDE
  10. LIPITOR [Suspect]
     Active Substance: ATORVASTATIN CALCIUM
     Dosage: 136 DAYS
     Route: 065
  11. TYLENOL [Concomitant]
     Active Substance: ACETAMINOPHEN
  12. SYNTHROID [Suspect]
     Active Substance: LEVOTHYROXINE SODIUM
     Indication: PRODUCT USED FOR UNKNOWN INDICATION
     Route: 065
  13. ACTEMRA [Suspect]
     Active Substance: TOCILIZUMAB
     Indication: RHEUMATOID ARTHRITIS
     Route: 042
  14. EFFEXOR XR [Concomitant]
     Active Substance: VENLAFAXINE HYDROCHLORIDE
  15. XANAX [Concomitant]
     Active Substance: ALPRAZOLAM
     Route: 065
  16. ZOCOR [Concomitant]
     Active Substance: SIMVASTATIN
     Route: 065
  17. CALCIUM [Concomitant]
     Active Substance: CALCIUM

REACTIONS (39)
  - Arthralgia [Recovering/Resolving]
  - Bacterial infection [Recovering/Resolving]
  - Cough [Recovering/Resolving]
  - Heart rate decreased [Recovering/Resolving]
  - Migraine [Recovering/Resolving]
  - Nasopharyngitis [Recovering/Resolving]
  - Rash [Recovering/Resolving]
  - Rectal haemorrhage [Recovering/Resolving]
  - Urinary tract infection [Recovering/Resolving]
  - Asthenia [Recovering/Resolving]
  - Bursitis [Recovering/Resolving]
  - Ear congestion [Recovering/Resolving]
  - Fatigue [Recovering/Resolving]
  - Inflammation [Recovering/Resolving]
  - Musculoskeletal pain [Recovering/Resolving]
  - Myalgia [Recovering/Resolving]
  - Sciatica [Recovering/Resolving]
  - Abdominal pain [Recovering/Resolving]
  - Blood pressure increased [Recovering/Resolving]
  - Deep vein thrombosis [Recovering/Resolving]
  - Oral herpes [Recovering/Resolving]
  - Cardiac failure congestive [Recovering/Resolving]
  - Bronchitis [Recovering/Resolving]
  - Weight decreased [Recovering/Resolving]
  - Weight increased [Recovering/Resolving]
  - Chest pain [Recovering/Resolving]
  - Contusion [Recovering/Resolving]
  - Fungal infection [Recovering/Resolving]
  - Heart rate irregular [Unknown]
  - Pain in extremity [Recovering/Resolving]
  - Atrial fibrillation [Recovering/Resolving]
  - Diarrhoea [Recovering/Resolving]
  - Dysphonia [Recovering/Resolving]
  - Headache [Recovering/Resolving]
  - Movement disorder [Recovering/Resolving]
  - Infusion related reaction [Recovering/Resolving]
  - Stress [Recovering/Resolving]
  - Swelling [Recovering/Resolving]
  - Thyroid disorder [Recovering/Resolving]
